FAERS Safety Report 21757806 (Version 1)
Quarter: 2022Q4

REPORT INFORMATION
  Report Type: Other
  Country: US (occurrence: None)
  Receive Date: 20221221
  Receipt Date: 20221221
  Transmission Date: 20230113
  Serious: No
  Sender: FDA-Public Use
  Company Number: US-ROCHE-2907302

PATIENT
  Age: 38 Year
  Sex: Female

DRUGS (5)
  1. ALTEPLASE [Suspect]
     Active Substance: ALTEPLASE
     Indication: Pulmonary embolism
     Route: 065
  2. ALTEPLASE [Suspect]
     Active Substance: ALTEPLASE
     Route: 065
  3. ALTEPLASE [Suspect]
     Active Substance: ALTEPLASE
     Route: 065
  4. EPINEPHRINE [Concomitant]
     Active Substance: EPINEPHRINE
     Indication: Hypotension
     Dosage: 2MCG/MIN
  5. EPINEPHRINE [Concomitant]
     Active Substance: EPINEPHRINE
     Indication: Bradycardia

REACTIONS (2)
  - Off label use [Unknown]
  - No adverse event [Unknown]
